FAERS Safety Report 6206395-0 (Version None)
Quarter: 2009Q2

REPORT INFORMATION
  Report Type: 
  Country: None (occurrence: None)
  Receive Date: 20090527
  Receipt Date: 20090527
  Transmission Date: 20091009
  Serious: Yes (Other)
  Sender: FDA-Public Use
  Company Number: None

PATIENT
  Age: 64 Year
  Sex: Female
  Weight: 81.6475 kg

DRUGS (1)
  1. EQUATE PERRIGO CO. [Suspect]
     Indication: BRONCHITIS
     Dosage: 2-3 SPRAYS IN EACH NOSTRIL EVERY 10-32 HOURS NASAL
     Route: 045
     Dates: start: 20090306, end: 20090312

REACTIONS (2)
  - ANOSMIA [None]
  - INAPPROPRIATE SCHEDULE OF DRUG ADMINISTRATION [None]
